FAERS Safety Report 4548195-3 (Version None)
Quarter: 2005Q1

REPORT INFORMATION
  Report Type: 
  Country: None (occurrence: None)
  Receive Date: 20050105
  Receipt Date: 20050105
  Transmission Date: 20050727
  Serious: Yes (Other)
  Sender: FDA-Public Use
  Company Number: None

PATIENT
  Sex: Male
  Weight: 79.3795 kg

DRUGS (4)
  1. ABILIFY [Suspect]
     Indication: DELUSIONAL DISORDER, UNSPECIFIED TYPE
     Dosage: 15 MG P.O. DAILY WITH EVENING MEAL
     Route: 048
     Dates: start: 20030923
  2. NEURONTIN [Concomitant]
  3. EFFEXOR [Concomitant]
  4. MAVIK [Concomitant]

REACTIONS (4)
  - DECREASED APPETITE [None]
  - ORAL INTAKE REDUCED [None]
  - PANCREATITIS [None]
  - TREATMENT NONCOMPLIANCE [None]
